FAERS Safety Report 16206736 (Version 1)
Quarter: 2019Q2

REPORT INFORMATION
  Report Type: Spontaneous
  Country: US (occurrence: US)
  Receive Date: 20190417
  Receipt Date: 20190417
  Transmission Date: 20190711
  Serious: No
  Sender: FDA-Public Use
  Company Number: US-HORIZON-PRO-0082-2019

PATIENT
  Age: 12 Year
  Sex: Male
  Weight: 33.2 kg

DRUGS (1)
  1. PROCYSBI [Suspect]
     Active Substance: CYSTEAMINE BITARTRATE
     Indication: CYSTINOSIS
     Dosage: 900 MG EVERY 12 HOURS
     Route: 048

REACTIONS (1)
  - Vomiting [Unknown]
